FAERS Safety Report 19027773 (Version 1)
Quarter: 2021Q1

REPORT INFORMATION
  Report Type: Spontaneous
  Country: US (occurrence: US)
  Receive Date: 20210318
  Receipt Date: 20210318
  Transmission Date: 20210420
  Serious: Yes (Death, Other)
  Sender: FDA-Public Use
  Company Number: US-PURDUE-USA-2020-0232025

PATIENT
  Age: 51 Year
  Sex: Male

DRUGS (10)
  1. TRAMADOL HYDROCHLORIDE. [Suspect]
     Active Substance: TRAMADOL HYDROCHLORIDE
     Indication: PAIN
  2. NEURONTIN [Concomitant]
     Active Substance: GABAPENTIN
     Indication: HAEMORRHAGIC STROKE
     Dosage: 600MG TID
     Route: 048
  3. ATIVAN [Concomitant]
     Active Substance: LORAZEPAM
     Indication: HAEMORRHAGIC STROKE
     Dosage: 10 MG  QID PRN
     Route: 048
  4. HYDROCODONE BITARTRATE AND ACETAMINOPHEN [Suspect]
     Active Substance: ACETAMINOPHEN\HYDROCODONE BITARTRATE
     Indication: HAEMORRHAGIC STROKE
     Dosage: UNKNOWN
     Route: 048
  5. OXYCODONE HCL TABLETS (RHODES 91?490) [Suspect]
     Active Substance: OXYCODONE HYDROCHLORIDE
     Indication: PAIN
  6. TRAMADOL HYDROCHLORIDE. [Suspect]
     Active Substance: TRAMADOL HYDROCHLORIDE
     Indication: HAEMORRHAGIC STROKE
     Dosage: UNKNOWN
     Route: 048
  7. OXYCONTIN [Suspect]
     Active Substance: OXYCODONE HYDROCHLORIDE
     Indication: HAEMORRHAGIC STROKE
     Dosage: UNKNOWN
     Route: 048
  8. OXY IR [Suspect]
     Active Substance: OXYCODONE HYDROCHLORIDE
     Indication: HAEMORRHAGIC STROKE
     Dosage: UNKNOWN
     Route: 065
  9. OXYCODONE HCL TABLETS (RHODES 91?490) [Suspect]
     Active Substance: OXYCODONE HYDROCHLORIDE
     Indication: HAEMORRHAGIC STROKE
     Dosage: UNKNOWN
     Route: 048
  10. OXYCODONE/ ACETAMINOPHEN TABLETS [Suspect]
     Active Substance: ACETAMINOPHEN\OXYCODONE HYDROCHLORIDE
     Indication: HAEMORRHAGIC STROKE
     Dosage: UNKNOWN
     Route: 048

REACTIONS (3)
  - Endocarditis bacterial [Fatal]
  - Drug dependence [Fatal]
  - Overdose [Unknown]

NARRATIVE: CASE EVENT DATE: 20181209
